FAERS Safety Report 10174614 (Version 2)
Quarter: 2014Q2

REPORT INFORMATION
  Report Type: Spontaneous
  Country: US (occurrence: US)
  Receive Date: 20140515
  Receipt Date: 20140613
  Transmission Date: 20141212
  Serious: Yes (Hospitalization)
  Sender: FDA-Public Use
  Company Number: US-GLAXOSMITHKLINE-A1072295A

PATIENT
  Age: 57 Year
  Sex: Male

DRUGS (7)
  1. ADVAIR [Suspect]
     Indication: CHRONIC OBSTRUCTIVE PULMONARY DISEASE
     Dosage: 1PUFF TWICE PER DAY
     Route: 055
  2. SPIRIVA [Concomitant]
  3. KOMBIGLYZE [Concomitant]
  4. LASIX [Concomitant]
  5. KEPPRA [Concomitant]
  6. UNKNOWN [Concomitant]
  7. AMOXICILLIN [Concomitant]

REACTIONS (5)
  - Oropharyngeal candidiasis [Recovered/Resolved]
  - Oropharyngeal pain [Unknown]
  - Neuropathy peripheral [Unknown]
  - Pain in extremity [Unknown]
  - Product quality issue [Unknown]
